FAERS Safety Report 15166026 (Version 1)
Quarter: 2018Q3

REPORT INFORMATION
  Report Type: Spontaneous
  Country: JP (occurrence: JP)
  Receive Date: 20180719
  Receipt Date: 20180719
  Transmission Date: 20181010
  Serious: Yes (Other)
  Sender: FDA-Public Use
  Company Number: JP-PFIZER INC-2018287393

PATIENT
  Age: 73 Year
  Sex: Female

DRUGS (1)
  1. IBRANCE [Suspect]
     Active Substance: PALBOCICLIB
     Indication: BREAST CANCER RECURRENT
     Dosage: 125 MG, UNK
     Route: 048
     Dates: start: 20180608, end: 20180622

REACTIONS (4)
  - Platelet count decreased [Recovered/Resolved]
  - Condition aggravated [Unknown]
  - White blood cell count decreased [Recovering/Resolving]
  - Osteonecrosis of jaw [Unknown]

NARRATIVE: CASE EVENT DATE: 20180622
